FAERS Safety Report 5410469-1 (Version None)
Quarter: 2007Q3

REPORT INFORMATION
  Report Type: 
  Country: None (occurrence: None)
  Receive Date: 20070810
  Receipt Date: 20070103
  Transmission Date: 20080115
  Serious: No
  Sender: FDA-Public Use
  Company Number: A0633748A

PATIENT
  Age: 83 Year
  Sex: Female

DRUGS (5)
  1. PAXIL [Suspect]
     Indication: DEPRESSION
     Route: 048
     Dates: start: 20061101
  2. XANAX [Concomitant]
  3. REMERON [Concomitant]
  4. LISINOPRIL [Concomitant]
  5. DARVOCET [Concomitant]

REACTIONS (1)
  - DRUG INEFFECTIVE [None]
